FAERS Safety Report 22787556 (Version 3)
Quarter: 2024Q1

REPORT INFORMATION
  Report Type: Spontaneous
  Country: US (occurrence: US)
  Receive Date: 20230804
  Receipt Date: 20240320
  Transmission Date: 20240410
  Serious: Yes (Other)
  Sender: FDA-Public Use
  Company Number: US-ACORDA-ACO_176040_2023

PATIENT
  Age: 44 Year
  Sex: Female
  Weight: 71.202 kg

DRUGS (4)
  1. AMPYRA [Suspect]
     Active Substance: DALFAMPRIDINE
     Indication: Multiple sclerosis
     Dosage: 10 MILLIGRAM, BID
     Route: 048
     Dates: start: 201712, end: 20230724
  2. ZOLOFT [Concomitant]
     Active Substance: SERTRALINE HYDROCHLORIDE
     Indication: Product used for unknown indication
     Dosage: UNKNOWN
     Route: 065
  3. GABAPENTIN [Concomitant]
     Active Substance: GABAPENTIN
     Indication: Product used for unknown indication
     Dosage: UNKNOWN
     Route: 065
  4. CLONAZEPAM [Concomitant]
     Active Substance: CLONAZEPAM
     Indication: Product used for unknown indication
     Dosage: UNKNOWN
     Route: 065

REACTIONS (19)
  - Seizure [Unknown]
  - Seizure [Unknown]
  - Bladder pain [Unknown]
  - Polyuria [Unknown]
  - Urinary retention [Unknown]
  - Vision blurred [Unknown]
  - Abdominal discomfort [Unknown]
  - Depression [Unknown]
  - Chest discomfort [Unknown]
  - Cough [Unknown]
  - Vertigo [Unknown]
  - Sensory loss [Unknown]
  - Contraindicated product prescribed [Unknown]
  - Dysarthria [Unknown]
  - Gait disturbance [Unknown]
  - Fatigue [Unknown]
  - Nasopharyngitis [Unknown]
  - Paraesthesia [Unknown]
  - Asthenia [Unknown]

NARRATIVE: CASE EVENT DATE: 20230616
